FAERS Safety Report 15924166 (Version 8)
Quarter: 2020Q1

REPORT INFORMATION
  Report Type: Report from Study
  Country: US (occurrence: US)
  Receive Date: 20190205
  Receipt Date: 20200306
  Transmission Date: 20200409
  Serious: Yes (Hospitalization)
  Sender: FDA-Public Use
  Company Number: US-ACTELION-A-NJ2018-180589

PATIENT
  Age: 48 Year
  Sex: Female
  Weight: 61.68 kg

DRUGS (4)
  1. ADCIRCA [Concomitant]
     Active Substance: TADALAFIL
  2. OPSUMIT [Suspect]
     Active Substance: MACITENTAN
     Indication: PULMONARY ARTERIAL HYPERTENSION
     Dosage: 10 MG, QD
     Route: 048
  3. REMODULIN [Suspect]
     Active Substance: TREPROSTINIL
     Dosage: UNK
     Route: 058
  4. REMODULIN [Suspect]
     Active Substance: TREPROSTINIL
     Indication: PRODUCT USED FOR UNKNOWN INDICATION
     Dosage: UNK
     Route: 042

REACTIONS (30)
  - Fibromyalgia [Unknown]
  - Dizziness [Unknown]
  - Device dislocation [Unknown]
  - Catheter site dermatitis [Unknown]
  - Fluid retention [Unknown]
  - Muscle spasms [Unknown]
  - Catheter site erythema [Unknown]
  - Crying [Unknown]
  - Nausea [Recovering/Resolving]
  - Catheter site pain [Unknown]
  - Malaise [Unknown]
  - Device related infection [Unknown]
  - Oxygen consumption [Unknown]
  - Device infusion issue [Unknown]
  - Therapy change [Unknown]
  - Device leakage [Unknown]
  - Road traffic accident [Unknown]
  - Catheter site warmth [Unknown]
  - Nasopharyngitis [Unknown]
  - Dyspnoea [Unknown]
  - Catheter site haemorrhage [Unknown]
  - Myalgia [Unknown]
  - Influenza [Unknown]
  - Nasal congestion [Unknown]
  - Rhinorrhoea [Unknown]
  - Vomiting [Recovering/Resolving]
  - Tachycardia [Recovering/Resolving]
  - Catheter management [Unknown]
  - Catheter site swelling [Unknown]
  - Migraine [Recovering/Resolving]

NARRATIVE: CASE EVENT DATE: 20181012
